FAERS Safety Report 10208931 (Version 1)
Quarter: 2014Q2

REPORT INFORMATION
  Report Type: Spontaneous
  Country: DE (occurrence: DE)
  Receive Date: 20140530
  Receipt Date: 20140530
  Transmission Date: 20141212
  Serious: Yes (Other)
  Sender: FDA-Public Use
  Company Number: DE-ALLERGAN-1411420US

PATIENT
  Age: 77 Year
  Sex: Male

DRUGS (5)
  1. OZURDEX [Suspect]
     Indication: MACULAR OEDEMA
     Dosage: 0.7 MG, SINGLE (LEFT EYE)
     Route: 031
     Dates: start: 201107, end: 201107
  2. OZURDEX [Suspect]
     Dosage: 0.7 MG, SINGLE (LEFT EYE)
     Dates: start: 201101, end: 201101
  3. OZURDEX [Suspect]
     Dosage: 0.7 MG, SINGLE  (LEFT EYE)
  4. RAMIPRIL [Concomitant]
     Indication: HYPERTENSION
  5. PHENPROCOUMON [Concomitant]
     Indication: ANTICOAGULANT THERAPY

REACTIONS (3)
  - Visual acuity reduced [Recovered/Resolved with Sequelae]
  - Cataract [Recovered/Resolved with Sequelae]
  - Intraocular pressure increased [Recovered/Resolved with Sequelae]
